FAERS Safety Report 18927934 (Version 1)
Quarter: 2021Q1

REPORT INFORMATION
  Report Type: Spontaneous
  Country: US (occurrence: US)
  Receive Date: 20210223
  Receipt Date: 20210223
  Transmission Date: 20210420
  Serious: Yes (Hospitalization)
  Sender: FDA-Public Use
  Company Number: None

PATIENT
  Age: 69 Year
  Sex: Male
  Weight: 81.19 kg

DRUGS (2)
  1. HYDROXYUREA. [Suspect]
     Active Substance: HYDROXYUREA
     Indication: ESSENTIAL THROMBOCYTHAEMIA
     Route: 048
     Dates: start: 20151214, end: 20200802
  2. RUXOLITINIB [Suspect]
     Active Substance: RUXOLITINIB

REACTIONS (8)
  - Hypotension [None]
  - Mental status changes [None]
  - Troponin increased [None]
  - Dizziness [None]
  - Acute kidney injury [None]
  - Anaemia macrocytic [None]
  - Fall [None]
  - Acute myocardial infarction [None]

NARRATIVE: CASE EVENT DATE: 20200802
